FAERS Safety Report 22294335 (Version 2)
Quarter: 2023Q4

REPORT INFORMATION
  Report Type: Report from Study
  Country: TH (occurrence: TH)
  Receive Date: 20230508
  Receipt Date: 20231019
  Transmission Date: 20240110
  Serious: Yes (Death, Other)
  Sender: FDA-Public Use
  Company Number: TH-002147023-NVSC2021TH172087

PATIENT
  Sex: Female

DRUGS (30)
  1. ELTROMBOPAG OLAMINE [Suspect]
     Active Substance: ELTROMBOPAG OLAMINE
     Indication: Aplastic anaemia
     Dosage: 62.5 MG, QD
     Route: 065
  2. ELTROMBOPAG OLAMINE [Suspect]
     Active Substance: ELTROMBOPAG OLAMINE
     Dosage: 25 MG 2 TABLET AT THE MORNING (5.30 AM) BEFORE BREAKFAST/MILK 2 HOURS
     Route: 048
     Dates: start: 20210701
  3. ELTROMBOPAG OLAMINE [Suspect]
     Active Substance: ELTROMBOPAG OLAMINE
     Dosage: 25 MG 2 TABLET AT BEDTIME (10 PM) AFTER DINNER/MILK AT LEAST 4 HOURS
     Route: 048
     Dates: start: 20220719
  4. ELTROMBOPAG OLAMINE [Suspect]
     Active Substance: ELTROMBOPAG OLAMINE
     Dosage: 25 MG 3 TABLET AT BEDTIME (10 PM) AFTER DINNER/MILK AT LEAST 4 HOURS
     Route: 048
     Dates: start: 20210731
  5. ELTROMBOPAG OLAMINE [Suspect]
     Active Substance: ELTROMBOPAG OLAMINE
     Dosage: 25 MG 3 TABLET AT BEDTIME (10 PM) AFTER DINNER/MILK AT LEAST 4 HOURS
     Route: 048
     Dates: start: 20220811
  6. ELTROMBOPAG OLAMINE [Suspect]
     Active Substance: ELTROMBOPAG OLAMINE
     Dosage: 25 MG 3 TABLET AT BEDTIME (10 PM) AFTER DINNER/MILK AT LEAST 4 HOURS
     Route: 048
     Dates: start: 20220814
  7. ELTROMBOPAG OLAMINE [Suspect]
     Active Substance: ELTROMBOPAG OLAMINE
     Dosage: 25 MG 4 TABLET AT BEDTIME (10 PM) AFTER DINNER/MILK AT LEAST 4 HOURS
     Route: 048
     Dates: start: 20210817
  8. ELTROMBOPAG OLAMINE [Suspect]
     Active Substance: ELTROMBOPAG OLAMINE
     Dosage: 25 MG 5 TABLET AT BEDTIME (10 PM) AFTER DINNER/MILK AT LEAST 4 HOURS
     Route: 048
     Dates: start: 20210906
  9. ELTROMBOPAG OLAMINE [Suspect]
     Active Substance: ELTROMBOPAG OLAMINE
     Dosage: 25 MG 3 TABLET AT 10 PM (SEPARATED FROM MEAL 4 HOURS)
     Route: 048
     Dates: start: 20211102
  10. ELTROMBOPAG OLAMINE [Suspect]
     Active Substance: ELTROMBOPAG OLAMINE
     Dosage: 25 MG 3 TABLET AT 10 PM (SEPARATED FROM MEAL 4 HOURS)
     Route: 048
     Dates: start: 20211108
  11. ELTROMBOPAG OLAMINE [Suspect]
     Active Substance: ELTROMBOPAG OLAMINE
     Dosage: 25 MG 3 TABLETS ON EVEN DAYS AND 2 TABLETS ON ODD DAYS AT 10 PM (SEPARATED FROM MEAL 4 HOURS)
     Route: 048
     Dates: start: 20211115
  12. ELTROMBOPAG OLAMINE [Suspect]
     Active Substance: ELTROMBOPAG OLAMINE
     Dosage: 25 MG 2 TABLET AT 10 PM (SEPARATED FROM MEAL 4 HOURS)
     Route: 048
     Dates: start: 20211202
  13. ELTROMBOPAG OLAMINE [Suspect]
     Active Substance: ELTROMBOPAG OLAMINE
     Dosage: 25 MG 3 TABLETS ON EVEN DAYS AND 2 TABLETS ON ODD DAYS AT 10 PM (SEPARATED FROM MEAL 4 HOURS)
     Route: 048
     Dates: start: 20211222
  14. ELTROMBOPAG OLAMINE [Suspect]
     Active Substance: ELTROMBOPAG OLAMINE
     Dosage: 25 MG TAKE 3 TABLETS AT 10 PM (SEPARATED FROM MEAL 4 HOURS)
     Route: 048
     Dates: start: 20220104
  15. ELTROMBOPAG OLAMINE [Suspect]
     Active Substance: ELTROMBOPAG OLAMINE
     Dosage: 100 MG 4 TABLET AT BEDTIME
     Route: 048
  16. ELTROMBOPAG OLAMINE [Suspect]
     Active Substance: ELTROMBOPAG OLAMINE
     Dosage: 25 MG TAKE 3 TABLETS AT 10 PM (SEPARATED FROM MEAL 4 HOURS),
     Route: 048
     Dates: start: 20220117
  17. ELTROMBOPAG OLAMINE [Suspect]
     Active Substance: ELTROMBOPAG OLAMINE
     Dosage: 100 MG, QD
     Route: 065
  18. ELTROMBOPAG OLAMINE [Suspect]
     Active Substance: ELTROMBOPAG OLAMINE
     Dosage: TAKEN 5 TABLETS AT BEDTIME
     Route: 065
     Dates: start: 20220523
  19. CYCLOSPORINE [Suspect]
     Active Substance: CYCLOSPORINE
     Indication: Product used for unknown indication
     Dosage: UNK
     Route: 048
  20. CYCLOSPORINE [Suspect]
     Active Substance: CYCLOSPORINE
     Dosage: 50 ML
     Route: 065
  21. MAGNESIUM CHLORIDE [Concomitant]
     Active Substance: MAGNESIUM CHLORIDE
     Indication: Product used for unknown indication
     Dosage: UNK
     Route: 065
  22. VITAMINS [Concomitant]
     Active Substance: VITAMINS
     Indication: Product used for unknown indication
     Dosage: 400 G
     Route: 065
  23. SODIUM CHLORIDE [Concomitant]
     Active Substance: SODIUM CHLORIDE
     Indication: Product used for unknown indication
     Dosage: 300 MG
     Route: 065
  24. SODIUM CHLORIDE [Concomitant]
     Active Substance: SODIUM CHLORIDE
     Dosage: 300 MG
     Route: 065
  25. CHLORHEXIDINE GLUCONATE [Concomitant]
     Active Substance: CHLORHEXIDINE GLUCONATE
     Indication: Product used for unknown indication
     Dosage: UNK
     Route: 065
  26. SULFAMETHOXAZOLE\TRIMETHOPRIM [Concomitant]
     Active Substance: SULFAMETHOXAZOLE\TRIMETHOPRIM
     Indication: Product used for unknown indication
     Dosage: UNK
     Route: 065
  27. WARFARIN [Concomitant]
     Active Substance: WARFARIN
     Indication: Product used for unknown indication
     Dosage: 2 MG
     Route: 065
  28. WARFARIN [Concomitant]
     Active Substance: WARFARIN
     Dosage: 3 MG
     Route: 065
  29. FUROSEMIDE [Concomitant]
     Active Substance: FUROSEMIDE
     Indication: Product used for unknown indication
     Dosage: UNK (20 MG/2 ML))
     Route: 065
  30. URSOLIN [Concomitant]
     Indication: Product used for unknown indication
     Route: 065

REACTIONS (4)
  - Death [Fatal]
  - Wrong technique in product usage process [Unknown]
  - Overdose [Unknown]
  - Incorrect dose administered [Unknown]
